FAERS Safety Report 5498742-2 (Version None)
Quarter: 2007Q4

REPORT INFORMATION
  Report Type: 
  Country: None (occurrence: None)
  Receive Date: 20071026
  Receipt Date: 20070712
  Transmission Date: 20080405
  Serious: No
  Sender: FDA-Public Use
  Company Number: A0663692A

PATIENT
  Age: 77 Year
  Sex: Male

DRUGS (12)
  1. ADVAIR DISKUS 100/50 [Suspect]
     Indication: CHRONIC OBSTRUCTIVE PULMONARY DISEASE
     Dosage: 1PUFF TWICE PER DAY
     Route: 055
     Dates: start: 20070711
  2. DUONEB [Concomitant]
  3. RHINOCORT [Concomitant]
  4. DIOVAN [Concomitant]
  5. TERAZOSIN HCL [Concomitant]
  6. ASPIRIN [Concomitant]
  7. PRILOSEC [Concomitant]
  8. MIRALAX [Concomitant]
  9. SAW PALMETTO [Concomitant]
  10. PRAVACHOL [Concomitant]
  11. PSYLLIUM SEED HULLS [Concomitant]
  12. OXYGEN / AIR [Concomitant]

REACTIONS (1)
  - DRUG INEFFECTIVE [None]
